FAERS Safety Report 9278251 (Version 1)
Quarter: 2013Q2

REPORT INFORMATION
  Report Type: Spontaneous
  Country: CN (occurrence: CN)
  Receive Date: 20130508
  Receipt Date: 20130508
  Transmission Date: 20140414
  Serious: Yes (Hospitalization, Other)
  Sender: FDA-Public Use
  Company Number: CN-JNJFOC-20130117295

PATIENT
  Age: 76 Year
  Sex: Male

DRUGS (5)
  1. XARELTO [Suspect]
     Indication: THROMBOSIS
     Route: 048
     Dates: start: 201210
  2. NEXAVAR [Concomitant]
     Indication: HEPATIC CANCER
     Route: 048
     Dates: start: 2010
  3. THYMUS EXTRACT [Concomitant]
     Route: 065
  4. ANTIVIRALS NOS [Concomitant]
     Indication: HEPATITIS B
     Route: 065
  5. VITAMIN C [Concomitant]
     Route: 065

REACTIONS (5)
  - Neoplasm [Unknown]
  - Rectal haemorrhage [Recovering/Resolving]
  - Yellow skin [Not Recovered/Not Resolved]
  - Epistaxis [Recovering/Resolving]
  - Off label use [Unknown]
